FAERS Safety Report 18239531 (Version 2)
Quarter: 2020Q3

REPORT INFORMATION
  Report Type: Report from Study
  Country: NL (occurrence: NL)
  Receive Date: 20200907
  Receipt Date: 20200914
  Transmission Date: 20201103
  Serious: Yes (Death, Life-Threatening, Hospitalization)
  Sender: FDA-Public Use
  Company Number: NL-ROCHE-2453214

PATIENT
  Age: 50 Year
  Sex: Male
  Weight: 85.3 kg

DRUGS (19)
  1. PARACETAMOL [Concomitant]
     Active Substance: ACETAMINOPHEN
     Route: 048
     Dates: start: 20190802, end: 20190802
  2. PARACETAMOL [Concomitant]
     Active Substance: ACETAMINOPHEN
     Route: 048
     Dates: start: 20190809, end: 20190809
  3. OBINUTUZUMAB. [Suspect]
     Active Substance: OBINUTUZUMAB
     Indication: B-CELL LYMPHOMA
     Dosage: ADMINISTERED ON DAY 1, 8 AND 15 DURING CYCLE 1, AND ON DAY 1 OF SUBSEQUENT CYCLES, FOR 6?8 CYCLES. E
     Route: 042
     Dates: start: 20190719, end: 20191125
  4. METOCLOPRAMIDE. [Concomitant]
     Active Substance: METOCLOPRAMIDE
     Dates: start: 20190719
  5. CLEMASTINE [Concomitant]
     Active Substance: CLEMASTINE
     Route: 042
     Dates: start: 20190802, end: 20190802
  6. PROPRANOLOL [Concomitant]
     Active Substance: PROPRANOLOL HYDROCHLORIDE
     Indication: PREMEDICATION
     Dates: start: 20190919, end: 20190919
  7. ALLOPURINOL. [Concomitant]
     Active Substance: ALLOPURINOL
     Dates: start: 20190718, end: 20190801
  8. CYCLOPHOSPHAMIDE. [Suspect]
     Active Substance: CYCLOPHOSPHAMIDE
     Indication: B-CELL LYMPHOMA
     Dosage: 750 MILLIGRAMS PER SQUARE METRE (MG/M^2), ADMINISTERED INTRAVENOUSLY (IV) ON DAY 1 OF EACH 21?DAY CY
     Route: 042
     Dates: start: 20190719
  9. PARACETAMOL [Concomitant]
     Active Substance: ACETAMINOPHEN
     Route: 048
     Dates: start: 20190830, end: 20190830
  10. CLEMASTINE [Concomitant]
     Active Substance: CLEMASTINE
     Indication: PREMEDICATION
     Route: 042
     Dates: start: 20190719, end: 20190719
  11. PARACETAMOL [Concomitant]
     Active Substance: ACETAMINOPHEN
     Indication: PREMEDICATION
     Route: 048
     Dates: start: 20190719, end: 20190719
  12. CLEMASTINE [Concomitant]
     Active Substance: CLEMASTINE
     Route: 042
     Dates: start: 20190726, end: 20190726
  13. ZOPICLONE [Concomitant]
     Active Substance: ZOPICLONE
     Indication: INSOMNIA
     Dates: start: 20191002, end: 20191015
  14. PREDNISONE. [Suspect]
     Active Substance: PREDNISONE
     Indication: B-CELL LYMPHOMA
     Dosage: 100 MG (OR EQUIVALENT PREDNISOLONE OR METHYLPREDNISOLONE), ADMINISTERED ORALLY ON DAYS 1?5 OF EACH 2
     Route: 048
     Dates: start: 20190719
  15. VARENICLINE [Concomitant]
     Active Substance: VARENICLINE
     Dates: start: 20190405
  16. PARACETAMOL [Concomitant]
     Active Substance: ACETAMINOPHEN
     Route: 048
     Dates: start: 20190726, end: 20190726
  17. CLEMASTINE [Concomitant]
     Active Substance: CLEMASTINE
     Route: 042
     Dates: start: 20190809, end: 20190809
  18. VINCRISTINE [Suspect]
     Active Substance: VINCRISTINE
     Indication: B-CELL LYMPHOMA
     Dosage: 1.4 MG/M^2 (MAXIMUM 2 MG) IV, ADMINISTERED ON DAY 1 OF EACH 21?DAY CYCLE, FOR SIX CYCLES FOR CHOP TR
     Route: 042
     Dates: start: 20190719
  19. CLEMASTINE [Concomitant]
     Active Substance: CLEMASTINE
     Route: 042
     Dates: start: 20190830, end: 20190830

REACTIONS (4)
  - Metastatic bronchial carcinoma [Not Recovered/Not Resolved]
  - Hyperkalaemia [Not Recovered/Not Resolved]
  - Arrhythmia [Not Recovered/Not Resolved]
  - Cardiac arrest [Fatal]

NARRATIVE: CASE EVENT DATE: 20190918
